FAERS Safety Report 17150542 (Version 4)
Quarter: 2024Q1

REPORT INFORMATION
  Report Type: Spontaneous
  Country: FR (occurrence: FR)
  Receive Date: 20191213
  Receipt Date: 20240123
  Transmission Date: 20240410
  Serious: Yes (Hospitalization, Other)
  Sender: FDA-Public Use
  Company Number: FR-BIOGARAN-B19002270

PATIENT
  Age: 58 Year
  Sex: Female

DRUGS (3)
  1. DARUNAVIR [Interacting]
     Active Substance: DARUNAVIR
     Indication: HIV infection
     Dosage: 800 MILLIGRAM
     Route: 065
  2. QUETIAPINE [Interacting]
     Active Substance: QUETIAPINE
     Indication: Bipolar disorder
     Dosage: 150 MILLGRAM, ONCE A DAY,(PROLONGED RELEASE FORM)
     Route: 065
  3. RITONAVIR [Interacting]
     Active Substance: RITONAVIR
     Indication: HIV infection
     Dosage: 100 MILLIGRAM
     Route: 065

REACTIONS (7)
  - Syncope [Unknown]
  - Electrocardiogram QT prolonged [Unknown]
  - Psychomotor retardation [Unknown]
  - Labelled drug-drug interaction medication error [Unknown]
  - Off label use [Unknown]
  - Drug interaction [Unknown]
  - Treatment noncompliance [Unknown]
